FAERS Safety Report 9144626 (Version 1)
Quarter: 2013Q1

REPORT INFORMATION
  Report Type: Report from Study
  Country: FR (occurrence: FR)
  Receive Date: 20130306
  Receipt Date: 20130306
  Transmission Date: 20140127
  Serious: Yes (Hospitalization)
  Sender: FDA-Public Use
  Company Number: FR-ROCHE-1194983

PATIENT
  Age: 71 Year
  Sex: Female
  Weight: 65 kg

DRUGS (45)
  1. TOCILIZUMAB [Suspect]
     Indication: RHEUMATOID ARTHRITIS
     Route: 041
     Dates: start: 20101105
  2. TOCILIZUMAB [Suspect]
     Route: 041
     Dates: start: 20101203
  3. TOCILIZUMAB [Suspect]
     Route: 041
     Dates: start: 20110105
  4. TOCILIZUMAB [Suspect]
     Route: 041
     Dates: start: 20110207
  5. TOCILIZUMAB [Suspect]
     Route: 041
     Dates: start: 20110308
  6. TOCILIZUMAB [Suspect]
     Route: 041
     Dates: start: 20110411
  7. TOCILIZUMAB [Suspect]
     Route: 041
     Dates: start: 20110530
  8. TOCILIZUMAB [Suspect]
     Dosage: 264 MG
     Route: 041
     Dates: start: 20110726
  9. TOCILIZUMAB [Suspect]
     Route: 041
     Dates: start: 20110824
  10. TOCILIZUMAB [Suspect]
     Route: 041
     Dates: start: 20110921
  11. TOCILIZUMAB [Suspect]
     Route: 041
     Dates: start: 20111019
  12. TOCILIZUMAB [Suspect]
     Route: 041
     Dates: start: 20111114
  13. TOCILIZUMAB [Suspect]
     Dosage: 260 MG
     Route: 041
     Dates: start: 20111223
  14. TOCILIZUMAB [Suspect]
     Dosage: 520 MG
     Route: 041
     Dates: start: 20120120
  15. TOCILIZUMAB [Suspect]
     Route: 041
     Dates: start: 20120224
  16. TOCILIZUMAB [Suspect]
     Route: 041
     Dates: start: 20120418
  17. CORTANCYL [Concomitant]
     Route: 065
     Dates: start: 20101105
  18. CORTANCYL [Concomitant]
     Route: 065
     Dates: start: 20101203
  19. CORTANCYL [Concomitant]
     Route: 065
     Dates: start: 20110105
  20. CORTANCYL [Concomitant]
     Route: 065
     Dates: start: 20110207
  21. CORTANCYL [Concomitant]
     Route: 065
     Dates: start: 20110308
  22. CORTANCYL [Concomitant]
     Route: 065
     Dates: start: 20110411
  23. CORTANCYL [Concomitant]
     Route: 065
     Dates: start: 20110530
  24. CORTANCYL [Concomitant]
     Route: 065
     Dates: start: 20110726
  25. CORTANCYL [Concomitant]
     Route: 065
     Dates: start: 20110824
  26. CORTANCYL [Concomitant]
     Route: 065
     Dates: start: 20110921
  27. CORTANCYL [Concomitant]
     Route: 065
     Dates: start: 20111019
  28. CORTANCYL [Concomitant]
     Route: 065
     Dates: start: 20111114
  29. CORTANCYL [Concomitant]
     Route: 065
     Dates: start: 20111223
  30. CORTANCYL [Concomitant]
     Route: 065
     Dates: start: 20120120
  31. CORTANCYL [Concomitant]
     Route: 065
     Dates: start: 20120224
  32. CORTANCYL [Concomitant]
     Route: 065
     Dates: start: 20120418
  33. PLAVIX [Concomitant]
     Dosage: 75
     Route: 065
  34. TRIATEC [Concomitant]
  35. SEROPLEX [Concomitant]
     Dosage: 10
     Route: 065
  36. OGAST [Concomitant]
     Dosage: 30
     Route: 065
  37. CARDENSIEL [Concomitant]
     Dosage: 5
     Route: 065
  38. ALDACTONE [Concomitant]
  39. CRESTOR [Concomitant]
     Dosage: 10
     Route: 065
  40. KENZEN [Concomitant]
     Dosage: 8
     Route: 065
  41. ZOLPIDEM [Concomitant]
     Dosage: 10
     Route: 065
  42. LASILIX [Concomitant]
     Dosage: 40
     Route: 065
  43. BROMAZEPAM [Concomitant]
     Route: 065
  44. ZALDIAR [Concomitant]
     Dosage: 37.5/325
     Route: 065
  45. KALEORID LP [Concomitant]
     Dosage: 600
     Route: 065

REACTIONS (11)
  - Ankle fracture [Recovered/Resolved]
  - Humerus fracture [Not Recovered/Not Resolved]
  - Joint dislocation [Not Recovered/Not Resolved]
  - Humerus fracture [Not Recovered/Not Resolved]
  - Aphthous stomatitis [Recovered/Resolved]
  - Dermatitis [Recovered/Resolved]
  - Leukopenia [Recovered/Resolved]
  - Colitis [Recovered/Resolved]
  - Gastroenteritis [Recovered/Resolved]
  - Tracheitis [Recovered/Resolved]
  - Diarrhoea [Recovered/Resolved]
